FAERS Safety Report 10693086 (Version 2)
Quarter: 2015Q1

REPORT INFORMATION
  Report Type: Spontaneous
  Country: HU (occurrence: HU)
  Receive Date: 20150106
  Receipt Date: 20150114
  Transmission Date: 20150720
  Serious: Yes (Other)
  Sender: FDA-Public Use
  Company Number: HU-SA-2015SA000187

PATIENT

DRUGS (3)
  1. METHOTREXATE [Suspect]
     Active Substance: METHOTREXATE
     Route: 065
  2. ARAVA [Suspect]
     Active Substance: LEFLUNOMIDE
     Indication: RHEUMATOID ARTHRITIS
     Route: 065
  3. MEDROL [Concomitant]
     Active Substance: METHYLPREDNISOLONE

REACTIONS (4)
  - Herpes zoster [Recovered/Resolved]
  - Blister [Recovered/Resolved]
  - Skin ulcer [Recovered/Resolved]
  - Renal impairment [Unknown]
